FAERS Safety Report 5154049-4 (Version None)
Quarter: 2006Q4

REPORT INFORMATION
  Report Type: 
  Country: None (occurrence: None)
  Receive Date: 20061116
  Receipt Date: 20061116
  Transmission Date: 20070319
  Serious: Yes (Hospitalization)
  Sender: FDA-Public Use
  Company Number: None

PATIENT
  Age: 23 Year
  Sex: Female
  Weight: 63.5036 kg

DRUGS (2)
  1. NUVARING [Suspect]
     Indication: CONTRACEPTION
     Dosage: 0.120MG / 0.015MG DAILY VAG
     Route: 067
     Dates: start: 20060421, end: 20061010
  2. ADVIL [Concomitant]

REACTIONS (5)
  - ABDOMINAL PAIN LOWER [None]
  - DEEP VEIN THROMBOSIS [None]
  - OEDEMA PERIPHERAL [None]
  - PAIN [None]
  - THERAPY NON-RESPONDER [None]
